FAERS Safety Report 10171223 (Version 1)
Quarter: 2014Q2

REPORT INFORMATION
  Report Type: Spontaneous
  Country: US (occurrence: US)
  Receive Date: 20140514
  Receipt Date: 20140514
  Transmission Date: 20141212
  Serious: No
  Sender: FDA-Public Use
  Company Number: US-PFIZER INC-2014128487

PATIENT
  Age: 28 Year
  Sex: Male

DRUGS (1)
  1. PROCARDIA XL [Suspect]
     Dosage: 60 MG,

REACTIONS (1)
  - Accident [Unknown]
